FAERS Safety Report 5456084-5 (Version None)
Quarter: 2007Q3

REPORT INFORMATION
  Report Type: 
  Country: None (occurrence: None)
  Receive Date: 20070917
  Receipt Date: 20070917
  Transmission Date: 20080115
  Serious: Yes (Hospitalization)
  Sender: FDA-Public Use
  Company Number: None

PATIENT
  Age: 49 Year
  Sex: Female
  Weight: 48 kg

DRUGS (9)
  1. CARBAMAZEPINE [Suspect]
     Indication: MOOD ALTERED
     Dosage: 200MG PO BID
     Route: 048
     Dates: start: 20070723, end: 20070725
  2. CLONAZEPAM [Concomitant]
  3. DEPAKOTE [Concomitant]
  4. LISINOPRIL [Concomitant]
  5. TOPROL-XL [Concomitant]
  6. PRILOSEC [Concomitant]
  7. DITROPAN [Concomitant]
  8. ZOCOR [Concomitant]
  9. GEODON [Concomitant]

REACTIONS (2)
  - HYPONATRAEMIA [None]
  - SYNCOPE [None]
